FAERS Safety Report 17351764 (Version 2)
Quarter: 2020Q1

REPORT INFORMATION
  Report Type: Spontaneous
  Country: DE (occurrence: DE)
  Receive Date: 20200130
  Receipt Date: 20200217
  Transmission Date: 20200409
  Serious: Yes (Life-Threatening, Other)
  Sender: FDA-Public Use
  Company Number: DE-MYLANLABS-2020M1011306

PATIENT
  Age: 71 Year
  Sex: Male
  Weight: 80 kg

DRUGS (3)
  1. RANIDURA T 300 MG, FILMTABLETTEN [Suspect]
     Active Substance: RANITIDINE HYDROCHLORIDE
     Indication: DYSPEPSIA
     Dosage: 300 MILLIGRAM
     Dates: start: 2015, end: 201910
  2. MARCUMAR [Concomitant]
     Active Substance: PHENPROCOUMON
  3. RANITIDINE. [Suspect]
     Active Substance: RANITIDINE
     Indication: DYSPEPSIA
     Dosage: 300 MILLIGRAM
     Route: 048
     Dates: start: 2015, end: 201910

REACTIONS (4)
  - Lung neoplasm malignant [Unknown]
  - Renal cancer [Unknown]
  - Tongue neoplasm malignant stage unspecified [Unknown]
  - Oropharyngeal cancer [Unknown]

NARRATIVE: CASE EVENT DATE: 20191012
